FAERS Safety Report 16082407 (Version 2)
Quarter: 2019Q4

REPORT INFORMATION
  Report Type: Spontaneous
  Country: CA (occurrence: CA)
  Receive Date: 20190318
  Receipt Date: 20191003
  Transmission Date: 20200122
  Serious: Yes (Life-Threatening, Hospitalization, Other)
  Sender: FDA-Public Use
  Company Number: CA-AUROBINDO-AUR-APL-2019-010745

PATIENT
  Sex: Male

DRUGS (18)
  1. LEVOMEPROMAZINE [Interacting]
     Active Substance: LEVOMEPROMAZINE
     Indication: PRODUCT USED FOR UNKNOWN INDICATION
     Dosage: UNK, AS REQUIRED
     Route: 048
  2. SALBUTAMOL [Interacting]
     Active Substance: ALBUTEROL
     Indication: PNEUMONIA
     Dosage: UNK
     Route: 065
  3. THIAMINE HCL [Interacting]
     Active Substance: THIAMINE HYDROCHLORIDE
     Indication: PRODUCT USED FOR UNKNOWN INDICATION
     Dosage: 100 MILLIGRAM, ONCE A DAY
     Route: 048
  4. CIPROFLOXACIN. [Interacting]
     Active Substance: CIPROFLOXACIN
     Indication: PNEUMONIA ASPIRATION
     Dosage: 400 MILLIGRAM, TWO TIMES A DAY, 1 EVERY 12 HOURS
     Route: 042
  5. METHADONE [Interacting]
     Active Substance: METHADONE HYDROCHLORIDE
     Indication: PRODUCT USED FOR UNKNOWN INDICATION
     Dosage: 50 MILLIGRAM, ONCE A DAY
     Route: 048
  6. ACETAMINOPHEN. [Concomitant]
     Active Substance: ACETAMINOPHEN
     Indication: PRODUCT USED FOR UNKNOWN INDICATION
     Dosage: UNK
     Route: 065
  7. ACETAMINOPHEN;CODEINE [Interacting]
     Active Substance: ACETAMINOPHEN\CODEINE PHOSPHATE
     Dosage: 650 MILLIGRAM, 1 EVERY 4 HOURS
     Route: 048
  8. IPRATROPIUM BROMIDE. [Interacting]
     Active Substance: IPRATROPIUM BROMIDE
     Indication: PRODUCT USED FOR UNKNOWN INDICATION
     Dosage: UNK
     Route: 065
  9. FOLIC ACID. [Interacting]
     Active Substance: FOLIC ACID
     Indication: PRODUCT USED FOR UNKNOWN INDICATION
     Dosage: 5 MILLIGRAM, ONCE A DAY
     Route: 048
  10. MORPHINE SULFATE. [Interacting]
     Active Substance: MORPHINE SULFATE
     Indication: PAIN
     Dosage: UNK
     Route: 058
  11. MORPHINE SULFATE. [Interacting]
     Active Substance: MORPHINE SULFATE
     Dosage: UNK
     Route: 048
  12. ACETAMINOPHEN;CODEINE [Interacting]
     Active Substance: ACETAMINOPHEN\CODEINE PHOSPHATE
     Indication: PRODUCT USED FOR UNKNOWN INDICATION
     Dosage: 325 MILLIGRAM, AS REQUIRED
     Route: 048
  13. FRAGMIN [Interacting]
     Active Substance: DALTEPARIN SODIUM
     Indication: PRODUCT USED FOR UNKNOWN INDICATION
     Dosage: 5000 UNITS, ONCE A DAY
     Route: 058
  14. MORPHINE SULFATE. [Interacting]
     Active Substance: MORPHINE SULFATE
     Dosage: UNK
     Route: 042
  15. CODEINE [Concomitant]
     Active Substance: CODEINE
     Indication: PRODUCT USED FOR UNKNOWN INDICATION
     Dosage: UNK
     Route: 065
  16. CLINDAMYCIN. [Suspect]
     Active Substance: CLINDAMYCIN
     Indication: PNEUMONIA ASPIRATION
     Dosage: 600 MILLIGRAM, 1 EVERY 8 HOURS
     Route: 042
  17. CEFUROXIME. [Interacting]
     Active Substance: CEFUROXIME
     Indication: PNEUMONIA
     Dosage: 750 MILLIGRAM, 1 EVERY 8 HOURS
     Route: 042
  18. METHOTRIMEPRAZINE [Interacting]
     Active Substance: LEVOMEPROMAZINE
     Indication: PRODUCT USED FOR UNKNOWN INDICATION
     Dosage: UNK AS REQUIRED
     Route: 048

REACTIONS (5)
  - Somnolence [Unknown]
  - Pneumonia aspiration [Unknown]
  - Drug interaction [Recovered/Resolved]
  - Respiratory depression [Recovered/Resolved]
  - Miosis [Recovered/Resolved]
